FAERS Safety Report 8453946 (Version 4)
Quarter: 2012Q4

REPORT INFORMATION
  Report Type: 
  Country: US (occurrence: US)
  Receive Date: 20120312
  Receipt Date: 20121017
  Transmission Date: 20130627
  Serious: Yes (Hospitalization, Other)
  Sender: FDA-Public Use
  Company Number: US-009507513-1203USA01081

PATIENT

DRUGS (6)
  1. FOSAMAX [Suspect]
     Indication: OSTEOPOROSIS
     Dosage: 70 mg, UNK
     Route: 048
     Dates: start: 2000, end: 20070601
  2. CALCIUM (UNSPECIFIED) [Concomitant]
     Dosage: 1500 mg, UNK
     Dates: start: 1997
  3. VITAMIN D (UNSPECIFIED) [Concomitant]
     Dosage: 800 IU, UNK
     Dates: start: 1997
  4. VITAMINS (UNSPECIFIED) [Concomitant]
     Dosage: UNK
     Dates: start: 1997
  5. RECLAST [Suspect]
     Indication: OSTEOPOROSIS
     Dosage: UNK
     Dates: start: 2009, end: 2011
  6. ACTONEL [Suspect]
     Indication: OSTEOPOROSIS
     Dosage: 35 mg, UNK
     Dates: start: 20071231, end: 200901

REACTIONS (46)
  - Femur fracture [Recovered/Resolved]
  - Fall [Unknown]
  - Intramedullary rod insertion [Recovered/Resolved]
  - Appendicectomy [Unknown]
  - Tonsillectomy [Unknown]
  - Bone disorder [Unknown]
  - Upper limb fracture [Unknown]
  - Fracture [Unknown]
  - Spinal compression fracture [Unknown]
  - Seasonal allergy [Unknown]
  - Rib fracture [Unknown]
  - Rib fracture [Unknown]
  - Spinal osteoarthritis [Unknown]
  - Kyphosis [Unknown]
  - Facet joint syndrome [Unknown]
  - Intervertebral disc degeneration [Unknown]
  - Aortic calcification [Unknown]
  - Emphysema [Unknown]
  - Pleural fibrosis [Unknown]
  - Osteoarthritis [Unknown]
  - Fractured sacrum [Unknown]
  - Rib fracture [Unknown]
  - Chest pain [Recovered/Resolved]
  - Osteopenia [Unknown]
  - Appendicitis [Unknown]
  - Haemorrhoids [Unknown]
  - Intestinal polyp [Unknown]
  - Diverticulitis [Unknown]
  - Laceration [Unknown]
  - Atelectasis [Unknown]
  - Peripheral coldness [Unknown]
  - Paraesthesia [Unknown]
  - Cerebral small vessel ischaemic disease [Unknown]
  - Productive cough [Unknown]
  - Upper respiratory tract congestion [Unknown]
  - Cerebrovascular disorder [Unknown]
  - Intestinal polyp [Unknown]
  - Blood cholesterol increased [Unknown]
  - Sinus disorder [Unknown]
  - Chest pain [Unknown]
  - Cardiac murmur [Unknown]
  - Migraine [Unknown]
  - Bronchitis [Unknown]
  - Vertigo [Unknown]
  - Headache [Unknown]
  - Gastrooesophageal reflux disease [Unknown]
